FAERS Safety Report 22201249 (Version 2)
Quarter: 2023Q2

REPORT INFORMATION
  Report Type: Other
  Country: CA (occurrence: None)
  Receive Date: 20230412
  Receipt Date: 20230414
  Transmission Date: 20230721
  Serious: Yes (Other)
  Sender: FDA-Public Use
  Company Number: CA-ROCHE-2575117

PATIENT
  Age: 32 Year
  Sex: Female

DRUGS (1)
  1. OCREVUS [Suspect]
     Active Substance: OCRELIZUMAB
     Indication: Relapsing-remitting multiple sclerosis
     Dosage: 300 MG AT DAY 0 AND 14, THEN 600 MG EVERY 6 MONTH
     Route: 042
     Dates: start: 20200121

REACTIONS (5)
  - Productive cough [Unknown]
  - COVID-19 [Recovered/Resolved with Sequelae]
  - Depression [Recovered/Resolved with Sequelae]
  - Anxiety [Recovering/Resolving]
  - Multiple sclerosis [Unknown]

NARRATIVE: CASE EVENT DATE: 20221201
